FAERS Safety Report 6578445-3 (Version None)
Quarter: 2010Q1

REPORT INFORMATION
  Report Type: 
  Country: None (occurrence: None)
  Receive Date: 20100211
  Receipt Date: 20100204
  Transmission Date: 20100710
  Serious: Yes (Other)
  Sender: FDA-Public Use
  Company Number: ES-ABBOTT-10P-144-0624305-00

PATIENT

DRUGS (4)
  1. ADALIMUMAB [Suspect]
     Indication: COLITIS ULCERATIVE
     Dosage: 160/80 MG
  2. ADALIMUMAB [Suspect]
  3. MESALAMINE [Concomitant]
     Indication: DRUG USE FOR UNKNOWN INDICATION
  4. CORTICOSTEROIDS [Concomitant]
     Indication: DRUG USE FOR UNKNOWN INDICATION

REACTIONS (1)
  - PSORIASIS [None]
